FAERS Safety Report 5930369-8 (Version None)
Quarter: 2008Q4

REPORT INFORMATION
  Report Type: 
  Country: None (occurrence: None)
  Receive Date: 20081023
  Receipt Date: 20060817
  Transmission Date: 20090506
  Serious: Yes (Other)
  Sender: FDA-Public Use
  Company Number: 2006AL002519

PATIENT
  Age: 80 Year
  Sex: Male

DRUGS (3)
  1. CITALOPRAM HYDROBROMIDE [Suspect]
     Indication: DEPRESSION
     Dosage: 20 MG QD PO
     Route: 048
     Dates: start: 20051114, end: 20060701
  2. CLONAZEPAM [Concomitant]
  3. DIHYDROCODEINE BITARTRATE INJ [Concomitant]

REACTIONS (1)
  - QUADRIPLEGIA [None]
